FAERS Safety Report 11922095 (Version 2)
Quarter: 2016Q1

REPORT INFORMATION
  Report Type: Report from Study
  Country: US (occurrence: US)
  Receive Date: 20160115
  Receipt Date: 20160121
  Transmission Date: 20160526
  Serious: Yes (Hospitalization)
  Sender: FDA-Public Use
  Company Number: US-ABBVIE-16K-163-1537013-00

PATIENT
  Age: 18 Year
  Sex: Male
  Weight: 60.38 kg

DRUGS (3)
  1. HUMIRA [Suspect]
     Active Substance: ADALIMUMAB
     Route: 058
     Dates: start: 20151210, end: 20151217
  2. HUMIRA [Suspect]
     Active Substance: ADALIMUMAB
     Indication: COLITIS ULCERATIVE
     Route: 058
     Dates: start: 20151204, end: 20151204
  3. HUMIRA [Suspect]
     Active Substance: ADALIMUMAB
     Route: 058
     Dates: start: 20160106

REACTIONS (3)
  - Anaemia [Not Recovered/Not Resolved]
  - Haemorrhage [Recovered/Resolved]
  - Colitis ulcerative [Recovered/Resolved]

NARRATIVE: CASE EVENT DATE: 20151229
